FAERS Safety Report 17785944 (Version 1)
Quarter: 2020Q2

REPORT INFORMATION
  Report Type: Spontaneous
  Country: US (occurrence: US)
  Receive Date: 20200513
  Receipt Date: 20200513
  Transmission Date: 20200714
  Serious: No
  Sender: FDA-Public Use
  Company Number: US-BIOMARINAP-US-2020-129725

PATIENT
  Age: 63 Year
  Sex: Male
  Weight: 122.9 kg

DRUGS (3)
  1. CARNITINE [Concomitant]
     Active Substance: CARNITINE
     Indication: CONSTIPATION
  2. KUVAN [Suspect]
     Active Substance: SAPROPTERIN DIHYDROCHLORIDE
     Indication: GENE MUTATION
     Dosage: 50 MILLIGRAM, QD
     Route: 048
     Dates: start: 20200403
  3. CARNITINE [Concomitant]
     Active Substance: CARNITINE
     Indication: CONSTIPATION

REACTIONS (3)
  - Arthralgia [Unknown]
  - Off label use [Unknown]
  - Joint swelling [Unknown]

NARRATIVE: CASE EVENT DATE: 20200408
